FAERS Safety Report 11151039 (Version 1)
Quarter: 2015Q2

REPORT INFORMATION
  Report Type: Spontaneous
  Country: US (occurrence: None)
  Receive Date: 20150529
  Receipt Date: 20150529
  Transmission Date: 20150821
  Serious: Yes (Death, Life-Threatening, Hospitalization, Disabling, Congenital Anomaly, Other)
  Sender: FDA-Public Use
  Company Number: None

PATIENT
  Age: 39 Year
  Sex: Male
  Weight: 90.72 kg

DRUGS (2)
  1. STEARIC ACID. [Suspect]
     Active Substance: STEARIC ACID
     Indication: PRODUCT USED FOR UNKNOWN INDICATION
     Dosage: IT^S IN MOST PRESCRIPTIONS  DAILY  TAKEN BY MOUTH
     Route: 048
  2. LACTOSE [Suspect]
     Active Substance: LACTOSE
     Indication: PRODUCT USED FOR UNKNOWN INDICATION
     Dosage: IT^S IN MOST PRESCRIPTIONS DAILY TAKEN BY MOUTH
     Route: 048

REACTIONS (2)
  - Galactosaemia [None]
  - Product formulation issue [None]

NARRATIVE: CASE EVENT DATE: 20050503
